FAERS Safety Report 6284200-4 (Version None)
Quarter: 2009Q3

REPORT INFORMATION
  Report Type: 
  Country: None (occurrence: None)
  Receive Date: 20090722
  Receipt Date: 20090710
  Transmission Date: 20100115
  Serious: Yes (Death)
  Sender: FDA-Public Use
  Company Number: GXKR2009DK07988

PATIENT
  Age: 21 Year
  Sex: Male

DRUGS (6)
  1. DIAZEPAM [Suspect]
  2. SUBOXONE [Suspect]
  3. NORDAZEPAM (NORDAZEPAM) [Suspect]
  4. OXAZEPAM [Suspect]
  5. KETAMINE (KETAMINE) [Concomitant]
  6. AMPHETAMINE SULFATE [Concomitant]

REACTIONS (4)
  - DRUG DIVERSION [None]
  - DRUG TOXICITY [None]
  - PORTAL TRIADITIS [None]
  - PULMONARY OEDEMA [None]
